FAERS Safety Report 7235532-4 (Version None)
Quarter: 2011Q1

REPORT INFORMATION
  Report Type: 
  Country: None (occurrence: None)
  Receive Date: 20110120
  Receipt Date: 20110110
  Transmission Date: 20110831
  Serious: Yes (Other)
  Sender: FDA-Public Use
  Company Number: PHHY2010AU89882

PATIENT
  Sex: Female

DRUGS (3)
  1. ASTELIN [Concomitant]
     Indication: OSTEOPOROSIS
     Dosage: 2 DAILY
     Route: 042
  2. ACLASTA [Suspect]
     Indication: OSTEOPOROSIS
     Dosage: 5 MG,
     Route: 042
     Dates: start: 20101217
  3. CITRACAL [Concomitant]
     Indication: OSTEOPOROSIS
     Dosage: 2 DAILY
     Route: 042

REACTIONS (4)
  - ABDOMINAL RIGIDITY [None]
  - ABDOMINAL PAIN UPPER [None]
  - PYREXIA [None]
  - THIRST [None]
